FAERS Safety Report 4390113-5 (Version None)
Quarter: 2004Q2

REPORT INFORMATION
  Report Type: 
  Country: None (occurrence: None)
  Receive Date: 20040630
  Receipt Date: 20040624
  Transmission Date: 20050107
  Serious: Yes (Other)
  Sender: FDA-Public Use
  Company Number: 2004212785US

PATIENT
  Age: 24 Year
  Sex: Female
  Weight: 104.3 kg

DRUGS (2)
  1. DEPO-PROVERA [Suspect]
     Indication: CONTRACEPTION
     Dosage: SEE IMAGE
     Dates: start: 19950601, end: 19950601
  2. DEPO-PROVERA [Suspect]
     Indication: CONTRACEPTION
     Dosage: SEE IMAGE
     Dates: start: 19990525, end: 19990525

REACTIONS (6)
  - AMENORRHOEA [None]
  - DEPRESSION [None]
  - HAIR GROWTH ABNORMAL [None]
  - HEADACHE [None]
  - INFERTILITY FEMALE [None]
  - WEIGHT INCREASED [None]
